FAERS Safety Report 4961987-1 (Version None)
Quarter: 2006Q2

REPORT INFORMATION
  Report Type: 
  Country: None (occurrence: None)
  Receive Date: 20060404
  Receipt Date: 20050922
  Transmission Date: 20061013
  Serious: Yes (Hospitalization, Other)
  Sender: FDA-Public Use
  Company Number: US-MERCK-0509USA03397

PATIENT
  Age: 58 Year
  Sex: Female
  Weight: 111 kg

DRUGS (1)
  1. VIOXX [Suspect]
     Indication: ARTHRITIS
     Route: 048
     Dates: start: 20011101, end: 20040209

REACTIONS (4)
  - ACUTE MYOCARDIAL INFARCTION [None]
  - GALLBLADDER DISORDER [None]
  - HERNIA [None]
  - INTESTINAL FUNCTIONAL DISORDER [None]
